FAERS Safety Report 26131254 (Version 1)
Quarter: 2025Q4

REPORT INFORMATION
  Report Type: Spontaneous
  Country: US (occurrence: US)
  Receive Date: 20251208
  Receipt Date: 20251208
  Transmission Date: 20260117
  Serious: No
  Sender: MYLAN
  Company Number: US-MYLANLABS-2025M1101375

PATIENT
  Age: 55 Year
  Sex: Male
  Weight: 86.18 kg

DRUGS (8)
  1. MESALAMINE [Suspect]
     Active Substance: MESALAMINE
     Indication: Colitis ulcerative
     Dosage: 0.0375 MILLIGRAM
  2. MESALAMINE [Suspect]
     Active Substance: MESALAMINE
     Dosage: 0.0375 MILLIGRAM
     Route: 048
  3. MESALAMINE [Suspect]
     Active Substance: MESALAMINE
     Dosage: 0.0375 MILLIGRAM
     Route: 048
  4. MESALAMINE [Suspect]
     Active Substance: MESALAMINE
     Dosage: 0.0375 MILLIGRAM
  5. LEVOTHYROXINE [Concomitant]
     Active Substance: LEVOTHYROXINE
     Indication: Thyroid disorder
     Dosage: 75 MICROGRAM, QD (ONCE DAILY)
  6. LEVOTHYROXINE [Concomitant]
     Active Substance: LEVOTHYROXINE
     Dosage: 75 MICROGRAM, QD (ONCE DAILY)
     Route: 065
  7. LEVOTHYROXINE [Concomitant]
     Active Substance: LEVOTHYROXINE
     Dosage: 75 MICROGRAM, QD (ONCE DAILY)
     Route: 065
  8. LEVOTHYROXINE [Concomitant]
     Active Substance: LEVOTHYROXINE
     Dosage: 75 MICROGRAM, QD (ONCE DAILY)

REACTIONS (3)
  - Illness [Recovered/Resolved]
  - Product substitution issue [Unknown]
  - Drug ineffective [Unknown]
